FAERS Safety Report 11709459 (Version 2)
Quarter: 2015Q4

REPORT INFORMATION
  Report Type: Spontaneous
  Country: US (occurrence: US)
  Receive Date: 20151104
  Receipt Date: 20151110
  Transmission Date: 20160304
  Serious: No
  Sender: FDA-Public Use
  Company Number: US-ELI_LILLY_AND_COMPANY-US201103001195

PATIENT
  Age: 71 Year
  Sex: Female

DRUGS (3)
  1. FORTEO [Suspect]
     Active Substance: TERIPARATIDE
     Dosage: 20 UG, QD
  2. FORTEO [Suspect]
     Active Substance: TERIPARATIDE
     Dosage: 20 UG, QD
     Dates: end: 20110910
  3. FORTEO [Suspect]
     Active Substance: TERIPARATIDE
     Indication: OSTEOPOROSIS
     Dosage: 20 UG, QD
     Dates: start: 20110218

REACTIONS (15)
  - Cystitis [Recovered/Resolved]
  - Sinus disorder [Unknown]
  - Joint stiffness [Unknown]
  - Fatigue [Unknown]
  - Diarrhoea [Not Recovered/Not Resolved]
  - Dysuria [Unknown]
  - Abnormal dreams [Unknown]
  - Sinus congestion [Unknown]
  - Malaise [Unknown]
  - Blood urine present [Recovering/Resolving]
  - Musculoskeletal disorder [Unknown]
  - Pain [Unknown]
  - Genital discharge [Unknown]
  - Intentional product misuse [Unknown]
  - Injection site bruising [Unknown]

NARRATIVE: CASE EVENT DATE: 201102
